FAERS Safety Report 4351092-X (Version None)
Quarter: 2004Q2

REPORT INFORMATION
  Report Type: 
  Country: None (occurrence: None)
  Receive Date: 20040427
  Receipt Date: 20040414
  Transmission Date: 20050107
  Serious: Yes (Death)
  Sender: FDA-Public Use
  Company Number: 2004205070GB

PATIENT
  Age: 66 Year
  Sex: Male

DRUGS (3)
  1. CAVERJECT [Suspect]
     Indication: ERECTILE DYSFUNCTION
     Dosage: INT CORP CAVERN
     Route: 011
  2. PARACETAMOL [Concomitant]
  3. DEXTROPROPOXYPHENE [Concomitant]

REACTIONS (1)
  - MYOCARDIAL INFARCTION [None]
